FAERS Safety Report 10425546 (Version 9)
Quarter: 2018Q4

REPORT INFORMATION
  Report Type: Spontaneous
  Country: FR (occurrence: FR)
  Receive Date: 20140902
  Receipt Date: 20181025
  Transmission Date: 20190204
  Serious: Yes (Hospitalization, Other)
  Sender: FDA-Public Use
  Company Number: FR-GILEAD-2014-0113284

PATIENT
  Age: 53 Year
  Sex: Male
  Weight: 80 kg

DRUGS (15)
  1. AVLOCARDYL                         /00030001/ [Concomitant]
     Active Substance: PROPRANOLOL HYDROCHLORIDE
     Dosage: UNK
     Dates: start: 20140724
  2. ESOMEPRAZOLE. [Concomitant]
     Active Substance: ESOMEPRAZOLE MAGNESIUM
     Indication: OESOPHAGITIS
     Dosage: ALSO 20 MG MAR-2014
     Route: 048
     Dates: start: 20140605
  3. LASILIX                            /00032601/ [Concomitant]
     Active Substance: FUROSEMIDE
     Indication: HEPATIC CIRRHOSIS
     Dosage: 40 MG, QD
     Route: 048
     Dates: start: 201402
  4. ALDACTONE [Concomitant]
     Active Substance: SPIRONOLACTONE
     Indication: ASCITES
     Dosage: 75 MG, INTERMITTENT
     Route: 048
     Dates: start: 201402
  5. AVLOCARDYL                         /00030001/ [Concomitant]
     Active Substance: PROPRANOLOL HYDROCHLORIDE
     Indication: VARICES OESOPHAGEAL
     Dosage: UNK
     Dates: start: 201403
  6. ALBUMIN [Concomitant]
     Active Substance: ALBUMIN HUMAN
     Indication: PRODUCT USED FOR UNKNOWN INDICATION
     Dosage: UNK
  7. ALDACTONE [Concomitant]
     Active Substance: SPIRONOLACTONE
     Indication: OEDEMA
  8. SOVALDI [Suspect]
     Active Substance: SOFOSBUVIR
     Dosage: LAST DOSE 18-AUG-2014
     Route: 048
     Dates: start: 20140815, end: 20140819
  9. LASILIX                            /00032601/ [Concomitant]
     Active Substance: FUROSEMIDE
     Indication: ASCITES
  10. ALDACTONE [Concomitant]
     Active Substance: SPIRONOLACTONE
     Indication: HEPATIC CIRRHOSIS
  11. DACLATASVIR. [Suspect]
     Active Substance: DACLATASVIR
     Indication: CHRONIC HEPATITIS C
     Dosage: 60 MG, QD
     Route: 048
     Dates: start: 20140815, end: 20140818
  12. DACLATASVIR. [Suspect]
     Active Substance: DACLATASVIR
     Dosage: LAST DOSE 18-AUG-2014
     Route: 048
     Dates: start: 20140815, end: 20140819
  13. LASILIX                            /00032601/ [Concomitant]
     Active Substance: FUROSEMIDE
     Indication: OEDEMA
  14. SOVALDI [Suspect]
     Active Substance: SOFOSBUVIR
     Indication: CHRONIC HEPATITIS C
     Dosage: 400 MG, QD
     Route: 048
     Dates: start: 20140815, end: 20140818
  15. PROPANOL [Concomitant]
     Active Substance: PROPRANOLOL HYDROCHLORIDE
     Indication: VARICES OESOPHAGEAL
     Dosage: 40 MG MAR-2014
     Route: 048
     Dates: start: 20140714

REACTIONS (5)
  - Pruritus [Recovering/Resolving]
  - Dermatitis [Recovering/Resolving]
  - Purpura [Recovering/Resolving]
  - Rash maculo-papular [Recovering/Resolving]
  - Hypersensitivity vasculitis [Recovering/Resolving]

NARRATIVE: CASE EVENT DATE: 20140818
